FAERS Safety Report 5071953-6 (Version None)
Quarter: 2006Q3

REPORT INFORMATION
  Report Type: 
  Country: None (occurrence: None)
  Receive Date: 20060801
  Receipt Date: 20060724
  Transmission Date: 20061208
  Serious: Yes (Other)
  Sender: FDA-Public Use
  Company Number: 2006090951

PATIENT
  Sex: Female

DRUGS (1)
  1. UNISOM SLEEPGELS [Suspect]
     Indication: INSOMNIA
     Dosage: TOTAL OF 14 SLEEPGELS WITHIN 3 HOURS, ORAL
     Route: 048
     Dates: start: 20060723, end: 20060723

REACTIONS (4)
  - FEELING ABNORMAL [None]
  - INCORRECT DOSE ADMINISTERED [None]
  - INSOMNIA [None]
  - NERVOUSNESS [None]
